FAERS Safety Report 9861982 (Version 1)
Quarter: 2014Q1

REPORT INFORMATION
  Report Type: Report from Study
  Country: CA (occurrence: CA)
  Receive Date: 20140203
  Receipt Date: 20140203
  Transmission Date: 20141002
  Serious: Yes (Other)
  Sender: FDA-Public Use
  Company Number: CA-JNJFOC-20140117005

PATIENT
  Age: 46 Year
  Sex: Female

DRUGS (2)
  1. REMICADE [Suspect]
     Indication: COLITIS ULCERATIVE
     Route: 042
     Dates: start: 201106
  2. REMICADE [Suspect]
     Indication: COLITIS ULCERATIVE
     Dosage: 18TH INFUSION
     Route: 042
     Dates: start: 20131202

REACTIONS (4)
  - Visual impairment [Recovered/Resolved]
  - Palpitations [Recovered/Resolved]
  - Sensation of heaviness [Recovered/Resolved]
  - Muscle tightness [Recovered/Resolved]
